FAERS Safety Report 12108285 (Version 4)
Quarter: 2016Q1

REPORT INFORMATION
  Report Type: Spontaneous
  Country: GB (occurrence: GB)
  Receive Date: 20160224
  Receipt Date: 20160328
  Transmission Date: 20160526
  Serious: Yes (Hospitalization)
  Sender: FDA-Public Use
  Company Number: GB-ROCHE-1714122

PATIENT
  Sex: Female

DRUGS (1)
  1. CELLCEPT [Suspect]
     Active Substance: MYCOPHENOLATE MOFETIL\MYCOPHENOLATE MOFETIL HYDROCHLORIDE
     Indication: PRODUCT USED FOR UNKNOWN INDICATION
     Route: 065

REACTIONS (8)
  - Illogical thinking [Unknown]
  - Osteoporosis [Unknown]
  - Asthma [Unknown]
  - Spinal fracture [Unknown]
  - Drug ineffective [Unknown]
  - Disturbance in attention [Unknown]
  - Lower respiratory tract infection [Unknown]
  - Stress [Unknown]
